FAERS Safety Report 4952972-4 (Version None)
Quarter: 2006Q1

REPORT INFORMATION
  Report Type: 
  Country: None (occurrence: None)
  Receive Date: 20060321
  Receipt Date: 20060308
  Transmission Date: 20060701
  Serious: Yes (Other)
  Sender: FDA-Public Use
  Company Number: JP-2006-003975

PATIENT
  Age: 58 Year
  Sex: Male

DRUGS (2)
  1. PROSCOPE 300                      (IOPROMIDE) SOLUTION [Suspect]
     Indication: ANGIOGRAM CEREBRAL
     Dosage: 20 ML, 1 DOSE, INTRA-ARTERIAL
     Route: 013
     Dates: start: 20060221, end: 20060221
  2. ATARAX [Concomitant]

REACTIONS (1)
  - SHOCK [None]
